FAERS Safety Report 25177229 (Version 1)
Quarter: 2025Q2

REPORT INFORMATION
  Report Type: Spontaneous
  Country: US (occurrence: US)
  Receive Date: 20250409
  Receipt Date: 20250409
  Transmission Date: 20250716
  Serious: Yes (Death, Life-Threatening, Other)
  Sender: TEVA
  Company Number: US-TEVA-VS-3318739

PATIENT
  Age: 96 Year
  Sex: Female

DRUGS (11)
  1. RAMELTEON [Suspect]
     Active Substance: RAMELTEON
     Indication: Product used for unknown indication
     Route: 065
  2. ZALEPLON [Suspect]
     Active Substance: ZALEPLON
     Indication: Product used for unknown indication
     Route: 065
     Dates: start: 2023
  3. ESZOPICLONE [Suspect]
     Active Substance: ESZOPICLONE
     Indication: Product used for unknown indication
     Route: 065
  4. CALCIUM [Suspect]
     Active Substance: CALCIUM
     Indication: Product used for unknown indication
     Route: 065
  5. DIAZEPAM [Suspect]
     Active Substance: DIAZEPAM
     Indication: Product used for unknown indication
     Route: 065
  6. METHOCARBAMOL [Suspect]
     Active Substance: METHOCARBAMOL
     Indication: Product used for unknown indication
     Route: 065
  7. MELATONIN\PYRIDOXINE HYDROCHLORIDE [Suspect]
     Active Substance: MELATONIN\PYRIDOXINE HYDROCHLORIDE
     Indication: Product used for unknown indication
     Route: 065
  8. ZOLPIDEM TARTRATE [Suspect]
     Active Substance: ZOLPIDEM TARTRATE
     Indication: Product used for unknown indication
     Dosage: AT BEDTIME
     Route: 004
  9. LORAZEPAM [Suspect]
     Active Substance: LORAZEPAM
     Indication: Product used for unknown indication
     Route: 065
  10. TEMAZEPAM [Suspect]
     Active Substance: TEMAZEPAM
     Indication: Product used for unknown indication
     Route: 065
  11. DIPHENHYDRAMINE HYDROCHLORIDE [Suspect]
     Active Substance: DIPHENHYDRAMINE HYDROCHLORIDE
     Indication: Product used for unknown indication
     Route: 065

REACTIONS (2)
  - Cardiac arrest [Fatal]
  - Overdose [Fatal]

NARRATIVE: CASE EVENT DATE: 20231010
